FAERS Safety Report 4700486-9 (Version None)
Quarter: 2005Q2

REPORT INFORMATION
  Report Type: 
  Country: None (occurrence: None)
  Receive Date: 20050627
  Receipt Date: 20050614
  Transmission Date: 20051028
  Serious: Yes (Other)
  Sender: FDA-Public Use
  Company Number: 2005AP03333

PATIENT
  Age: 55 Year
  Sex: Female

DRUGS (3)
  1. ANAPEINE [Suspect]
     Indication: LOCAL ANAESTHESIA
     Route: 053
     Dates: start: 20050421, end: 20050421
  2. XYLOCAINE [Concomitant]
     Indication: LOCAL ANAESTHESIA
     Route: 061
     Dates: start: 20050421, end: 20050421
  3. CERCINE [Concomitant]
     Dates: start: 20050421, end: 20050421

REACTIONS (2)
  - CONVULSION [None]
  - THERAPEUTIC AGENT TOXICITY [None]
